FAERS Safety Report 18063276 (Version 2)
Quarter: 2020Q3

REPORT INFORMATION
  Report Type: Other
  Country: US (occurrence: US)
  Receive Date: 20200724
  Receipt Date: 20200807
  Transmission Date: 20201103
  Serious: Yes (Other)
  Sender: FDA-Public Use
  Company Number: US-INTERCEPT-PM2020001134

PATIENT
  Age: 70 Year
  Sex: Male

DRUGS (9)
  1. LISINOPRIL. [Concomitant]
     Active Substance: LISINOPRIL
  2. ELIQUIS [Concomitant]
     Active Substance: APIXABAN
  3. OCALIVA [Suspect]
     Active Substance: OBETICHOLIC ACID
     Indication: PRIMARY BILIARY CHOLANGITIS
     Dosage: 5 MG, QD
     Route: 048
     Dates: start: 20200306, end: 20200504
  4. SOLO                               /00075401/ [Concomitant]
  5. LEVOTHYROXINE SODIUM. [Concomitant]
     Active Substance: LEVOTHYROXINE SODIUM
  6. ASPIRIN EC [Concomitant]
     Active Substance: ASPIRIN
  7. ROSUVASTATIN CALCIUM. [Concomitant]
     Active Substance: ROSUVASTATIN CALCIUM
  8. URSODIOL. [Concomitant]
     Active Substance: URSODIOL
     Dosage: 600 MG, BID
     Dates: start: 2018
  9. MAGNESIUM [Concomitant]
     Active Substance: MAGNESIUM

REACTIONS (27)
  - Blood calcium abnormal [Unknown]
  - Eosinophil count abnormal [Unknown]
  - Blood glucose abnormal [Unknown]
  - Haematocrit abnormal [Unknown]
  - Mean cell haemoglobin concentration abnormal [Unknown]
  - Type IV hypersensitivity reaction [Unknown]
  - Red blood cell count abnormal [Unknown]
  - Haemoglobin abnormal [Unknown]
  - Blood urea nitrogen/creatinine ratio increased [Unknown]
  - Arthralgia [Unknown]
  - Asthenia [Recovered/Resolved]
  - Myositis [Unknown]
  - Neck injury [Recovering/Resolving]
  - Monocyte count abnormal [Unknown]
  - Blood urea abnormal [Unknown]
  - Myopathy [Unknown]
  - White blood cell count abnormal [Unknown]
  - Mean cell volume abnormal [Unknown]
  - Blood magnesium abnormal [Unknown]
  - Gait inability [Unknown]
  - Myalgia [Recovered/Resolved]
  - Lymphocyte count abnormal [Unknown]
  - Muscle tightness [Recovered/Resolved]
  - Neck pain [Unknown]
  - Neutrophil count abnormal [Unknown]
  - Immature granulocyte count increased [Unknown]
  - Blood sodium abnormal [Unknown]

NARRATIVE: CASE EVENT DATE: 2020
